FAERS Safety Report 22132215 (Version 1)
Quarter: 2023Q1

REPORT INFORMATION
  Report Type: Spontaneous
  Country: US (occurrence: US)
  Receive Date: 20230323
  Receipt Date: 20230323
  Transmission Date: 20230417
  Serious: No
  Sender: FDA-Public Use
  Company Number: US-PERRIGO-23US000624

PATIENT
  Age: 70 Year
  Sex: Male
  Weight: 82.993 kg

DRUGS (13)
  1. PSEUDOEPHEDRINE HYDROCHLORIDE [Suspect]
     Active Substance: PSEUDOEPHEDRINE HYDROCHLORIDE
     Indication: Hypersensitivity
     Dosage: 120 MG, QD
     Route: 048
     Dates: start: 20230111, end: 20230111
  2. PSEUDOEPHEDRINE HYDROCHLORIDE [Suspect]
     Active Substance: PSEUDOEPHEDRINE HYDROCHLORIDE
     Dosage: HALF TABLET, SINGLE
     Route: 048
     Dates: start: 20230117, end: 20230117
  3. METOPROLOL [Concomitant]
     Active Substance: METOPROLOL
     Indication: Cardiac disorder
     Dosage: UNK
     Route: 065
     Dates: start: 202212
  4. TAMSULOSIN [Concomitant]
     Active Substance: TAMSULOSIN
     Indication: Micturition disorder
     Dosage: 0.4 MG
     Route: 065
  5. FIRMAGON [Concomitant]
     Active Substance: DEGARELIX ACETATE
     Indication: Prostate cancer
     Dosage: UNK
     Route: 065
     Dates: start: 202201
  6. JARDIANCE [Concomitant]
     Active Substance: EMPAGLIFLOZIN
     Indication: Diabetes mellitus
     Dosage: 25 MG
     Route: 065
  7. BUPROPION [Concomitant]
     Active Substance: BUPROPION
     Indication: Depression
     Dosage: 100 MG
     Route: 065
     Dates: start: 2021
  8. BUPROPION [Concomitant]
     Active Substance: BUPROPION
     Indication: Anxiety
  9. BUPROPION [Concomitant]
     Active Substance: BUPROPION
     Indication: Nervousness
  10. ELIQUIS [Concomitant]
     Active Substance: APIXABAN
     Indication: Myocardial infarction
     Dosage: UNK
     Route: 065
     Dates: start: 202212
  11. ELIQUIS [Concomitant]
     Active Substance: APIXABAN
     Indication: Cerebrovascular accident
  12. ASPIRIN [Concomitant]
     Active Substance: ASPIRIN
     Indication: Myocardial infarction
     Dosage: UNK
     Route: 065
     Dates: start: 202212
  13. CLOPIDOGREL [Concomitant]
     Active Substance: CLOPIDOGREL BISULFATE
     Indication: Myocardial infarction
     Dosage: 75 MG
     Route: 065
     Dates: start: 202212

REACTIONS (3)
  - Epistaxis [Recovered/Resolved]
  - Off label use [Unknown]
  - Wrong technique in product usage process [Unknown]

NARRATIVE: CASE EVENT DATE: 20230111
